FAERS Safety Report 4869637-X (Version None)
Quarter: 2005Q4

REPORT INFORMATION
  Report Type: 
  Country: None (occurrence: None)
  Receive Date: 20051227
  Receipt Date: 20051220
  Transmission Date: 20060501
  Serious: Yes (Hospitalization)
  Sender: FDA-Public Use
  Company Number: HQWYE095220DEC05

PATIENT
  Age: 48 Year
  Sex: Female

DRUGS (4)
  1. LIBIAN-28 (LEVONORGESTREL/ETHINYL ESTRADIOL/INERT, TABLET) [Suspect]
     Indication: MENORRHAGIA
     Dosage: 1 TABLET 1X PER 1 DAY ORAL
     Route: 048
     Dates: start: 20051204
  2. LIBIAN-28 (LEVONORGESTREL/ETHINYL ESTRADIOL/INERT, TABLET) [Suspect]
     Indication: UTERINE LEIOMYOMA
     Dosage: 1 TABLET 1X PER 1 DAY ORAL
     Route: 048
     Dates: start: 20051204
  3. DOXAZOSIN MESYLATE [Concomitant]
  4. MICARDIS [Concomitant]

REACTIONS (2)
  - PAIN IN EXTREMITY [None]
  - THROMBOSIS [None]
